FAERS Safety Report 8962642 (Version 1)
Quarter: 2012Q4

REPORT INFORMATION
  Report Type: 
  Country: US (occurrence: US)
  Receive Date: 20121214
  Receipt Date: 20121214
  Transmission Date: 20130627
  Serious: Yes (Hospitalization)
  Sender: FDA-Public Use
  Company Number: US-SANOFI-AVENTIS-2012SA090110

PATIENT
  Age: 69 Year
  Sex: Male
  Weight: 85.3 kg

DRUGS (5)
  1. PLAVIX [Suspect]
     Indication: DRUG USE FOR UNKNOWN INDICATION
     Route: 065
     Dates: start: 20090307
  2. ASPIRIN [Suspect]
     Indication: DRUG USE FOR UNKNOWN INDICATION
     Dosage: daily dose- 325 mg, from text-mentioned as- 2.5 mg
     Route: 065
     Dates: start: 20090307
  3. ALTACE [Concomitant]
     Dates: start: 20090308
  4. METOPROLOL SUCCINATE [Concomitant]
     Dates: start: 20090616
  5. BLINDED THERAPY [Concomitant]
     Dates: start: 20090522

REACTIONS (4)
  - Anaemia [Recovered/Resolved]
  - Pulmonary embolism [Recovered/Resolved]
  - Osteoarthritis [Recovered/Resolved]
  - Deep vein thrombosis [Recovered/Resolved]
